FAERS Safety Report 6975164-6 (Version None)
Quarter: 2010Q3

REPORT INFORMATION
  Report Type: 
  Country: None (occurrence: None)
  Receive Date: 20100910
  Receipt Date: 20090209
  Transmission Date: 20110219
  Serious: No
  Sender: FDA-Public Use
  Company Number: US-WYE-H08137509

PATIENT
  Sex: Male
  Weight: 81.72 kg

DRUGS (1)
  1. TORISEL [Suspect]
     Indication: RENAL CELL CARCINOMA

REACTIONS (2)
  - INFUSION SITE SWELLING [None]
  - INJECTION SITE EXTRAVASATION [None]
